FAERS Safety Report 4347909-5 (Version None)
Quarter: 2004Q2

REPORT INFORMATION
  Report Type: 
  Country: None (occurrence: None)
  Receive Date: 20040422
  Receipt Date: 20040407
  Transmission Date: 20050107
  Serious: Yes (Other)
  Sender: FDA-Public Use
  Company Number: 2004-BP-02720RO

PATIENT
  Sex: Male

DRUGS (2)
  1. DISKETS DISPERSIBLE TABLETS (METHADONE HCL TABLETS USP), 40 MG (METHAD [Suspect]
     Indication: DRUG WITHDRAWAL MAINTENANCE THERAPY
     Dosage: 80 MG QD (40 MG, 2 IN 1 D), PO;  100 MG QD (40 MG), PO
     Route: 048
     Dates: start: 19830101, end: 20030801
  2. DISKETS DISPERSIBLE TABLETS (METHADONE HCL TABLETS USP), 40 MG (METHAD [Suspect]
     Indication: DRUG WITHDRAWAL MAINTENANCE THERAPY
     Dosage: 80 MG QD (40 MG, 2 IN 1 D), PO;  100 MG QD (40 MG), PO
     Route: 048
     Dates: start: 20030801

REACTIONS (1)
  - RHABDOMYOLYSIS [None]
